FAERS Safety Report 7278814 (Version 3)
Quarter: 2014Q2

REPORT INFORMATION
  Report Type: Report from Study
  Country: JP (occurrence: JP)
  Receive Date: 20100215
  Receipt Date: 20140528
  Transmission Date: 20141212
  Serious: Yes (Death, Hospitalization, Other)
  Sender: FDA-Public Use
  Company Number: PHHY2010JP06417

PATIENT
  Age: 80 Year
  Sex: Female
  Weight: 40 kg

DRUGS (9)
  1. GLIVEC [Suspect]
     Indication: CHRONIC MYELOID LEUKAEMIA
     Dosage: 400 MG, DAILY
     Route: 048
     Dates: start: 20011221
  2. GLIVEC [Suspect]
     Dosage: 400 MG, DAILY
     Route: 048
     Dates: start: 20091119
  3. GLIVEC [Suspect]
     Dosage: 400 MG, DAILY
     Route: 048
     Dates: start: 2009, end: 20091110
  4. GLIVEC [Suspect]
     Dosage: 400 MG, DAILY
     Dates: start: 2009
  5. NO TREATMENT RECEIVED [Suspect]
  6. PARIET [Concomitant]
     Indication: GASTROOESOPHAGEAL REFLUX DISEASE
     Dosage: 20 MG
     Route: 048
     Dates: start: 20020220, end: 20090121
  7. HOCHUUEKKITOU [Concomitant]
     Indication: IMMUNE ENHANCEMENT THERAPY
     Dosage: 3 DF, UNK
     Route: 048
     Dates: start: 20080601, end: 20100121
  8. HACHIMIJIO-GAN [Concomitant]
     Indication: IMMUNE ENHANCEMENT THERAPY
     Dosage: 1 DF, UNK
     Route: 048
     Dates: start: 20080601, end: 20100121
  9. BAKUMONDOUTO [Concomitant]
     Indication: LARYNGEAL DISCOMFORT
     Dosage: 1 DF, UNK
     Route: 048
     Dates: start: 20080616, end: 20100121

REACTIONS (12)
  - Chronic myeloid leukaemia [Fatal]
  - Oedema [Recovering/Resolving]
  - Pleural effusion [Recovering/Resolving]
  - Femoral neck fracture [Unknown]
  - Aspiration [Unknown]
  - Cough [Unknown]
  - Choking [Unknown]
  - Wheezing [Unknown]
  - Ascites [Recovering/Resolving]
  - Blood creatine phosphokinase increased [Unknown]
  - Musculoskeletal pain [Unknown]
  - Urine output decreased [Unknown]
